FAERS Safety Report 7209582-8 (Version None)
Quarter: 2011Q1

REPORT INFORMATION
  Report Type: 
  Country: None (occurrence: None)
  Receive Date: 20110104
  Receipt Date: 20101223
  Transmission Date: 20110831
  Serious: Yes (Hospitalization, Other)
  Sender: FDA-Public Use
  Company Number: BR-PFIZER INC-2010178659

PATIENT
  Age: 70 Year
  Sex: Female

DRUGS (3)
  1. PILOCARPINE [Concomitant]
     Dosage: UNK
     Dates: start: 20071223, end: 20080123
  2. TRAVATAN [Suspect]
     Dosage: UNK
     Dates: start: 20081223, end: 20090123
  3. XALATAN [Suspect]
     Indication: GLAUCOMA
     Dosage: 3 UG, 1X/DAY (1 DROP IN EACH EYE, 1X/DAY)
     Route: 047
     Dates: start: 20001101, end: 20040101

REACTIONS (4)
  - PARAESTHESIA [None]
  - HYPERSENSITIVITY [None]
  - SPINAL FRACTURE [None]
  - FALL [None]
